FAERS Safety Report 14363398 (Version 1)
Quarter: 2018Q1

REPORT INFORMATION
  Report Type: Report from Study
  Country: CA (occurrence: CA)
  Receive Date: 20180108
  Receipt Date: 20180108
  Transmission Date: 20180509
  Serious: Yes (Hospitalization)
  Sender: FDA-Public Use
  Company Number: CA-JNJFOC-20170925326

PATIENT
  Age: 41 Year
  Sex: Female
  Weight: 125 kg

DRUGS (1)
  1. REMICADE [Suspect]
     Active Substance: INFLIXIMAB
     Indication: COLITIS ULCERATIVE
     Route: 042
     Dates: start: 20100127

REACTIONS (3)
  - Bladder disorder [Unknown]
  - Kidney infection [Unknown]
  - Exploratory operation [Unknown]

NARRATIVE: CASE EVENT DATE: 201709
